FAERS Safety Report 9348175 (Version 1)
Quarter: 2013Q2

REPORT INFORMATION
  Report Type: Spontaneous
  Country: US (occurrence: None)
  Receive Date: 20130612
  Receipt Date: 20130612
  Transmission Date: 20140414
  Serious: No
  Sender: FDA-Public Use
  Company Number: None

PATIENT
  Age: 91 Year
  Sex: Female

DRUGS (1)
  1. BOSULIF [Suspect]
     Route: 048
     Dates: start: 20121228

REACTIONS (2)
  - Dizziness [None]
  - Gait disturbance [None]
